FAERS Safety Report 11862697 (Version 2)
Quarter: 2016Q1

REPORT INFORMATION
  Report Type: Report from Study
  Country: ID (occurrence: ID)
  Receive Date: 20151223
  Receipt Date: 20160101
  Transmission Date: 20160526
  Serious: Yes (Death, Hospitalization, Other)
  Sender: FDA-Public Use
  Company Number: ID-ROCHE-1681379

PATIENT
  Age: 57 Year
  Sex: Female

DRUGS (1)
  1. MABTHERA [Suspect]
     Active Substance: RITUXIMAB
     Indication: DIFFUSE LARGE B-CELL LYMPHOMA
     Route: 065
     Dates: start: 20130917

REACTIONS (6)
  - Nausea [Unknown]
  - Vomiting [Unknown]
  - Metastases to gastrointestinal tract [Unknown]
  - Pain [Unknown]
  - General physical health deterioration [Fatal]
  - Haemoglobin decreased [Unknown]
